FAERS Safety Report 5955074-3 (Version None)
Quarter: 2008Q4

REPORT INFORMATION
  Report Type: 
  Country: None (occurrence: None)
  Receive Date: 20081117
  Receipt Date: 20081031
  Transmission Date: 20090506
  Serious: Yes (Other)
  Sender: FDA-Public Use
  Company Number: B0545580A

PATIENT
  Age: 41 Year
  Sex: Male

DRUGS (7)
  1. EPIVIR [Suspect]
     Indication: HIV INFECTION
     Route: 048
     Dates: start: 20051119, end: 20051207
  2. ZIAGEN [Suspect]
     Indication: HIV INFECTION
     Route: 048
     Dates: start: 20051119, end: 20051207
  3. VIRAMUNE [Suspect]
     Indication: HIV INFECTION
     Route: 048
     Dates: start: 20051119, end: 20051207
  4. ZERIT [Suspect]
     Indication: HIV INFECTION
     Route: 048
     Dates: start: 20051208
  5. VIDEX [Suspect]
     Indication: HIV INFECTION
     Route: 048
     Dates: start: 20080205
  6. TRUVADA [Concomitant]
     Route: 048
     Dates: start: 20060612
  7. KALETRA [Concomitant]
     Route: 048
     Dates: start: 20070412

REACTIONS (2)
  - ADVERSE EVENT [None]
  - DRUG RASH WITH EOSINOPHILIA AND SYSTEMIC SYMPTOMS [None]
